FAERS Safety Report 9370979 (Version 1)
Quarter: 2013Q2

REPORT INFORMATION
  Report Type: Spontaneous
  Country: FR (occurrence: FR)
  Receive Date: 20130627
  Receipt Date: 20130627
  Transmission Date: 20140414
  Serious: Yes (Life-Threatening)
  Sender: FDA-Public Use
  Company Number: FR-ABBOTT-13X-056-1110702-00

PATIENT
  Age: 33 Year
  Sex: Male

DRUGS (5)
  1. DEPAKOTE [Suspect]
     Indication: MANIA
     Dosage: 1000 MILLIGRAM(S);DAILY
     Route: 048
     Dates: start: 20130509, end: 20130602
  2. LARGACTIL [Suspect]
     Indication: MANIA
     Dosage: 225 MILLIGRAM(S);DAILY
     Route: 048
     Dates: start: 20130509, end: 20130602
  3. TERALITHE [Suspect]
     Indication: MANIA
     Dosage: 400 MILLIGRAM(S); DAILY
     Route: 048
     Dates: start: 20130521, end: 20130602
  4. LEPTICUR [Suspect]
     Indication: EXTRAPYRAMIDAL DISORDER
     Dosage: 30 MILLIGRAM(S);DAILY
     Route: 048
     Dates: start: 20130514, end: 20130602
  5. QUETIAPINE FUMARATE [Suspect]
     Indication: MANIA
     Dosage: 800 MILLIGRAM(S);DAILY
     Route: 048
     Dates: start: 20130521, end: 20130602

REACTIONS (3)
  - Intestinal obstruction [Not Recovered/Not Resolved]
  - Septic shock [Not Recovered/Not Resolved]
  - Multi-organ failure [Not Recovered/Not Resolved]
